FAERS Safety Report 4931661-6 (Version None)
Quarter: 2006Q1

REPORT INFORMATION
  Report Type: 
  Country: None (occurrence: None)
  Receive Date: 20060303
  Receipt Date: 20051219
  Transmission Date: 20060701
  Serious: Yes (Other)
  Sender: FDA-Public Use
  Company Number: US-BRISTOL-MYERS SQUIBB COMPANY-13221700

PATIENT
  Age: 70 Year
  Sex: Male
  Weight: 84 kg

DRUGS (11)
  1. ERBITUX [Suspect]
     Indication: RECTAL CANCER METASTATIC
     Dosage: HELD ON 05-DEC-2005 DUE TO GENERALIZED RASH.
     Route: 042
  2. ALOXI [Concomitant]
     Indication: PREMEDICATION
     Route: 042
  3. ATROPINE [Concomitant]
     Indication: PREMEDICATION
  4. BENADRYL [Concomitant]
     Indication: PREMEDICATION
     Route: 042
  5. DECADRON SRC [Concomitant]
     Indication: PREMEDICATION
     Route: 042
  6. ZANTAC [Concomitant]
     Indication: PREMEDICATION
     Route: 042
  7. ASPIRIN [Concomitant]
  8. CAMPTOSAR [Concomitant]
  9. OCUVITE [Concomitant]
     Dosage: EYE DROPS.
     Route: 047
  10. SAW PALMETTO [Concomitant]
  11. VITAMIN E [Concomitant]

REACTIONS (2)
  - PAIN IN EXTREMITY [None]
  - RASH GENERALISED [None]
